FAERS Safety Report 18795666 (Version 1)
Quarter: 2021Q1

REPORT INFORMATION
  Report Type: Spontaneous
  Country: CA (occurrence: CA)
  Receive Date: 20210127
  Receipt Date: 20210127
  Transmission Date: 20210419
  Serious: Yes (Death, Other)
  Sender: FDA-Public Use
  Company Number: CA-NAPPMUNDI-GBR-2017-0044850

PATIENT
  Age: 91 Year
  Sex: Female

DRUGS (4)
  1. NON?PMN MORPHINE SULFATE [Suspect]
     Active Substance: MORPHINE SULFATE
     Dosage: 2 MG, Q1H PRN
     Route: 058
  2. HYDROMORPHONE HYDROCHLORIDE. [Suspect]
     Active Substance: HYDROMORPHONE HYDROCHLORIDE
     Indication: PAIN
     Dosage: UNK
     Route: 065
  3. HYDROMORPHONE HCL (SIMILAR TO 19?892) [Suspect]
     Active Substance: HYDROMORPHONE HYDROCHLORIDE
     Indication: PAIN
     Dosage: UNK
     Route: 065
  4. NON?PMN MORPHINE SULFATE [Suspect]
     Active Substance: MORPHINE SULFATE
     Indication: PAIN
     Dosage: 4 MG, Q4H
     Route: 058

REACTIONS (4)
  - Product name confusion [Fatal]
  - Oxygen saturation decreased [Not Recovered/Not Resolved]
  - Accidental overdose [Fatal]
  - Lethargy [Not Recovered/Not Resolved]
